FAERS Safety Report 17331577 (Version 1)
Quarter: 2020Q1

REPORT INFORMATION
  Report Type: Spontaneous
  Country: US (occurrence: US)
  Receive Date: 20200127
  Receipt Date: 20200127
  Transmission Date: 20200409
  Serious: No
  Sender: FDA-Public Use
  Company Number: US-AMGEN-USASP2020012007

PATIENT
  Age: 65 Year
  Sex: Male

DRUGS (2)
  1. VECTIBIX [Suspect]
     Active Substance: PANITUMUMAB
     Indication: COLORECTAL CANCER METASTATIC
     Dosage: 200 MILLIGRAM
     Route: 065
     Dates: start: 20191203, end: 20191203
  2. VECTIBIX [Suspect]
     Active Substance: PANITUMUMAB
     Dosage: 200 MILLIGRAM
     Route: 065

REACTIONS (1)
  - Dental operation [Unknown]

NARRATIVE: CASE EVENT DATE: 20191217
